FAERS Safety Report 5766642-6 (Version None)
Quarter: 2008Q2

REPORT INFORMATION
  Report Type: 
  Country: None (occurrence: None)
  Receive Date: 20080609
  Receipt Date: 20080527
  Transmission Date: 20081010
  Serious: Yes (Life-Threatening, Hospitalization)
  Sender: FDA-Public Use
  Company Number: POMP-11104

PATIENT
  Age: 61 Year
  Sex: Female
  Weight: 55 kg

DRUGS (7)
  1. MYOZYME [Suspect]
     Indication: GLYCOGEN STORAGE DISEASE TYPE II
     Dosage: 20 MG/KG, Q2W, INTRAVENOUS
     Route: 042
     Dates: start: 20060414, end: 20070619
  2. EPINEPHRINE [Suspect]
     Indication: INFUSION RELATED REACTION
     Dosage: 1 MG, QD, SUBCUTANEOUS
     Route: 058
     Dates: start: 20070619, end: 20070619
  3. EVISTA [Concomitant]
  4. CALTRATE (CALCIUM CARBONATE) [Concomitant]
  5. ALPHAGAN [Concomitant]
  6. CENTRUM (VITAMINS NOS, MINERALS NOS) [Concomitant]
  7. ADVIL [Concomitant]

REACTIONS (8)
  - ABDOMINAL PAIN [None]
  - BRADYCARDIA [None]
  - CHILLS [None]
  - HYPERSENSITIVITY [None]
  - HYPOTENSION [None]
  - HYPOTHERMIA [None]
  - MYOCARDIAL INFARCTION [None]
  - PALLOR [None]
